FAERS Safety Report 11289167 (Version 1)
Quarter: 2015Q3

REPORT INFORMATION
  Report Type: Spontaneous
  Country: US (occurrence: US)
  Receive Date: 20150721
  Receipt Date: 20150721
  Transmission Date: 20151125
  Serious: No
  Sender: FDA-Public Use
  Company Number: US-ENDO PHARMACEUTICALS INC.-2015-000913

PATIENT
  Sex: Female

DRUGS (1)
  1. CLONAZEPAM 0.5MG [Suspect]
     Active Substance: CLONAZEPAM
     Indication: ANXIETY
     Route: 048
     Dates: start: 2014

REACTIONS (2)
  - Drug ineffective [Not Recovered/Not Resolved]
  - Abnormal behaviour [Not Recovered/Not Resolved]
